FAERS Safety Report 8530121-3 (Version None)
Quarter: 2012Q3

REPORT INFORMATION
  Report Type: 
  Country: None (occurrence: None)
  Receive Date: 20120723
  Receipt Date: 20120709
  Transmission Date: 20120928
  Serious: Yes (Hospitalization, Disabling, Other)
  Sender: FDA-Public Use
  Company Number: MX-RANBAXY-2012RR-57648

PATIENT
  Age: 26 Year
  Sex: Female

DRUGS (5)
  1. RISPERIDONE [Suspect]
     Indication: CATATONIA
  2. ZUCLOPENTHIXOL [Suspect]
     Indication: AGGRESSION
     Dosage: UNK
     Route: 065
  3. RISPERIDONE [Suspect]
     Indication: PSYCHOTIC DISORDER
     Dosage: 2 MG, UNK
     Route: 065
  4. OLANZAPINE [Suspect]
     Indication: PSYCHOMOTOR HYPERACTIVITY
     Dosage: TITRATED UP TO 20 MG/DAY
     Route: 065
  5. CLOZAPINE [Suspect]
     Indication: DYSTONIA
     Dosage: 100 MG/DAY
     Route: 065

REACTIONS (2)
  - CONDITION AGGRAVATED [None]
  - NEUTROPENIA [None]
